FAERS Safety Report 6040720-9 (Version None)
Quarter: 2009Q1

REPORT INFORMATION
  Report Type: 
  Country: None (occurrence: None)
  Receive Date: 20090116
  Receipt Date: 20080627
  Transmission Date: 20090719
  Serious: No
  Sender: FDA-Public Use
  Company Number: US-BRISTOL-MYERS SQUIBB COMPANY-14187397

PATIENT

DRUGS (2)
  1. ABILIFY [Suspect]
     Dosage: REDUCED TO 1 MG.
  2. LAMICTAL [Suspect]
     Dosage: 1 DOSAGE FORM = 150 (NO UNIT)

REACTIONS (2)
  - AKATHISIA [None]
  - LABYRINTHITIS [None]
